FAERS Safety Report 23733212 (Version 2)
Quarter: 2024Q2

REPORT INFORMATION
  Report Type: Spontaneous
  Country: KR (occurrence: KR)
  Receive Date: 20240411
  Receipt Date: 20240419
  Transmission Date: 20240716
  Serious: Yes (Other)
  Sender: FDA-Public Use
  Company Number: KR-TAKEDA-2024TUS031228

PATIENT
  Age: 57 Year
  Sex: Male
  Weight: 90 kg

DRUGS (5)
  1. PANTOPRAZOLE SODIUM [Suspect]
     Active Substance: PANTOPRAZOLE SODIUM
     Indication: Peptic ulcer
     Dosage: 1 DOSAGE FORM, QD
     Dates: start: 20201211
  2. METHOTREXATE SODIUM [Suspect]
     Active Substance: METHOTREXATE SODIUM
     Indication: Peptic ulcer
     Dosage: 4 DOSAGE FORM, QD
     Dates: start: 20201211
  3. PREDNISOLONE [Suspect]
     Active Substance: PREDNISOLONE
     Indication: Peptic ulcer
     Dosage: 1 DOSAGE FORM, Q12H
     Dates: start: 20201211
  4. PELUBIPROFEN [Suspect]
     Active Substance: PELUBIPROFEN
     Indication: Peptic ulcer
     Dosage: 1 DOSAGE FORM, Q12H
     Dates: start: 20201211
  5. ARTEMISIA ARGYI LEAF [Suspect]
     Active Substance: ARTEMISIA ARGYI LEAF
     Indication: Peptic ulcer
     Dosage: 1 DOSAGE FORM, Q12H
     Dates: start: 20201211

REACTIONS (1)
  - Cerebral infarction [Recovered/Resolved with Sequelae]

NARRATIVE: CASE EVENT DATE: 20201211
